FAERS Safety Report 7259197-0 (Version None)
Quarter: 2011Q1

REPORT INFORMATION
  Report Type: 
  Country: None (occurrence: None)
  Receive Date: 20110129
  Receipt Date: 20100806
  Transmission Date: 20110831
  Serious: No
  Sender: FDA-Public Use
  Company Number: US-ABBOTT-10P-163-0658377-00

PATIENT
  Sex: Female
  Weight: 66.284 kg

DRUGS (5)
  1. HUMIRA [Suspect]
     Indication: CROHN'S DISEASE
     Dates: start: 20090201
  2. TRAZODONE HCL [Concomitant]
     Indication: FIBROMYALGIA
  3. DARVOCET-N 100 [Concomitant]
     Indication: PAIN
  4. PENTAZA [Concomitant]
     Indication: CROHN'S DISEASE
  5. ETODOLAC [Concomitant]
     Indication: ARTHRITIS

REACTIONS (2)
  - INCORRECT ROUTE OF DRUG ADMINISTRATION [None]
  - WRONG TECHNIQUE IN DRUG USAGE PROCESS [None]
